FAERS Safety Report 9814676 (Version 1)
Quarter: 2014Q1

REPORT INFORMATION
  Report Type: Spontaneous
  Country: US (occurrence: US)
  Receive Date: 20140113
  Receipt Date: 20140113
  Transmission Date: 20141002
  Serious: Yes (Other)
  Sender: FDA-Public Use
  Company Number: CHPA2014US000607

PATIENT
  Age: 40 Year
  Sex: Female

DRUGS (2)
  1. EX-LAX UNKNOWN [Suspect]
     Dosage: UNK
     Route: 048
  2. ANTIHYPERTENSIVES [Concomitant]
     Indication: HYPERTENSION

REACTIONS (2)
  - Retinal disorder [Unknown]
  - Cataract [Unknown]
